FAERS Safety Report 9342737 (Version 1)
Quarter: 2013Q2

REPORT INFORMATION
  Report Type: Spontaneous
  Country: CN (occurrence: CN)
  Receive Date: 20130611
  Receipt Date: 20130611
  Transmission Date: 20140414
  Serious: Yes (Hospitalization)
  Sender: FDA-Public Use
  Company Number: CN-ASTRAZENECA-2013SE41652

PATIENT
  Sex: Male

DRUGS (2)
  1. PLENDIL [Suspect]
     Indication: HYPERTENSION
     Route: 048
     Dates: start: 20121001, end: 20121204
  2. BENAZEPRIL [Suspect]
     Indication: HYPERTENSION

REACTIONS (3)
  - Palpitations [Recovering/Resolving]
  - Drug effect decreased [Recovering/Resolving]
  - Hypertension [Recovering/Resolving]
